FAERS Safety Report 8765431 (Version 2)
Quarter: 2012Q4

REPORT INFORMATION
  Report Type: 
  Country: US (occurrence: US)
  Receive Date: 20120902
  Receipt Date: 20121001
  Transmission Date: 20130627
  Serious: Yes (Hospitalization, Other)
  Sender: FDA-Public Use
  Company Number: US-PFIZER INC-2012215184

PATIENT
  Age: 79 Year
  Sex: Female
  Weight: 68.03 kg

DRUGS (6)
  1. GEODON [Suspect]
     Indication: PSYCHOTIC DISORDER
     Dosage: 20 mg, daily
     Dates: start: 201202
  2. LEVOTHYROXINE [Concomitant]
     Indication: HYPOTHYROIDISM
     Dosage: 88 ug, daily
  3. PRAVASTATIN [Concomitant]
     Indication: BLOOD CHOLESTEROL INCREASED
     Dosage: 20 mg, daily
  4. DEPAKOTE [Concomitant]
     Indication: COMPLEX PARTIAL SEIZURES
     Dosage: 250 mg, 2x/day
  5. ACETYLSALICYLIC ACID [Concomitant]
     Dosage: 81 mg, daily
  6. VITAMIN D [Concomitant]
     Indication: VITAMIN D DEFICIENCY
     Dosage: 2000 IU, daily

REACTIONS (3)
  - Kidney infection [Recovered/Resolved]
  - Urinary incontinence [Not Recovered/Not Resolved]
  - Laryngeal papilloma [Not Recovered/Not Resolved]
